FAERS Safety Report 18309047 (Version 6)
Quarter: 2020Q4

REPORT INFORMATION
  Report Type: Report from Study
  Country: CA (occurrence: CA)
  Receive Date: 20200924
  Receipt Date: 20201202
  Transmission Date: 20210113
  Serious: Yes (Other)
  Sender: FDA-Public Use
  Company Number: CA-JNJFOC-20200930552

PATIENT
  Age: 20 Year
  Sex: Female

DRUGS (2)
  1. REMICADE [Suspect]
     Active Substance: INFLIXIMAB
     Indication: CROHN^S DISEASE
     Dosage: MOST RECENT INFUSION TOOK ON 13-AUG-2020
     Route: 042
     Dates: start: 20190107, end: 20200928
  2. REMICADE [Suspect]
     Active Substance: INFLIXIMAB
     Dosage: MOST RECENT INFUSION TOOK ON 13-AUG-2020
     Route: 042

REACTIONS (2)
  - Staphylococcal infection [Not Recovered/Not Resolved]
  - Subcutaneous abscess [Unknown]
